FAERS Safety Report 4932069-X (Version None)
Quarter: 2006Q1

REPORT INFORMATION
  Report Type: 
  Country: None (occurrence: None)
  Receive Date: 20060303
  Receipt Date: 20060222
  Transmission Date: 20060701
  Serious: Yes (Other)
  Sender: FDA-Public Use
  Company Number: PHBS2006JP02776

PATIENT
  Age: 75 Year
  Sex: Female

DRUGS (2)
  1. RESCULA [Suspect]
     Indication: GLAUCOMA
     Dosage: 4 DRP/DAY
     Dates: start: 20000905, end: 20050910
  2. TARIVID OPHTHALMIC [Concomitant]
     Route: 047

REACTIONS (2)
  - CONJUNCTIVITIS [None]
  - ULCERATIVE KERATITIS [None]
